FAERS Safety Report 10042138 (Version 1)
Quarter: 2014Q1

REPORT INFORMATION
  Report Type: Spontaneous
  Country: DK (occurrence: CH)
  Receive Date: 20140327
  Receipt Date: 20140327
  Transmission Date: 20141002
  Serious: Yes (Hospitalization)
  Sender: FDA-Public Use
  Company Number: CH-FRI-1000065846

PATIENT
  Sex: Female

DRUGS (8)
  1. CITALOPRAM [Suspect]
     Dosage: 40 MG
     Route: 048
     Dates: end: 20140125
  2. CITALOPRAM [Suspect]
     Route: 048
     Dates: start: 20140124, end: 20140124
  3. TRANXILIUM [Concomitant]
     Dosage: 10 MG
     Route: 048
  4. TRANXILIUM [Concomitant]
     Route: 048
     Dates: start: 20140124, end: 20140124
  5. TRANXILIUM [Concomitant]
     Dosage: DOSE INCREASED
     Route: 048
  6. VALDOXAN [Concomitant]
     Dosage: 25 MG
     Route: 048
     Dates: end: 20140125
  7. VALDOXAN [Concomitant]
     Route: 048
     Dates: start: 20140124, end: 20140124
  8. AMLODIPIN [Concomitant]
     Dosage: 5 MG
     Dates: end: 20140125

REACTIONS (2)
  - Drug abuse [Recovered/Resolved]
  - Suicide attempt [Recovered/Resolved]
